FAERS Safety Report 14670689 (Version 1)
Quarter: 2018Q1

REPORT INFORMATION
  Report Type: Spontaneous
  Country: TW (occurrence: TW)
  Receive Date: 20180322
  Receipt Date: 20180322
  Transmission Date: 20180509
  Serious: Yes (Other)
  Sender: FDA-Public Use
  Company Number: PHHY2018TW048552

PATIENT
  Age: 76 Year
  Sex: Female

DRUGS (1)
  1. TEGRETOL [Suspect]
     Active Substance: CARBAMAZEPINE
     Indication: EPILEPSY
     Dosage: 100 MG, BID
     Route: 048
     Dates: start: 20151216, end: 20160106

REACTIONS (2)
  - Nausea [Unknown]
  - Vertigo [Unknown]
